FAERS Safety Report 21476767 (Version 1)
Quarter: 2022Q4

REPORT INFORMATION
  Report Type: Spontaneous
  Country: US (occurrence: None)
  Receive Date: 20221018
  Receipt Date: 20221018
  Transmission Date: 20230113
  Serious: Yes (Life-Threatening)
  Sender: FDA-Public Use
  Company Number: None

PATIENT
  Age: 74 Year
  Sex: Male
  Weight: 67.13 kg

DRUGS (1)
  1. DIVALPROEX SODIUM [Suspect]
     Active Substance: DIVALPROEX SODIUM
     Indication: Schizophrenia
     Dosage: 1 TAB PO QHS TAB AT BEDTIME PO?
     Route: 048
     Dates: start: 20220916, end: 20220927

REACTIONS (6)
  - Delirium [None]
  - Depressed level of consciousness [None]
  - Sepsis [None]
  - Pneumonia aspiration [None]
  - Therapy cessation [None]
  - Drug level below therapeutic [None]

NARRATIVE: CASE EVENT DATE: 20220922
